FAERS Safety Report 6732432-0 (Version None)
Quarter: 2010Q2

REPORT INFORMATION
  Report Type: 
  Country: None (occurrence: None)
  Receive Date: 20100519
  Receipt Date: 20100507
  Transmission Date: 20101027
  Serious: Yes (Other)
  Sender: FDA-Public Use
  Company Number: TR-ELI_LILLY_AND_COMPANY-TR201003007553

PATIENT
  Sex: Female

DRUGS (6)
  1. HUMULIN N [Suspect]
     Dosage: 24 U, EACH EVENING
     Route: 064
     Dates: end: 20100122
  2. VITAMIN C WITH ZINC [Concomitant]
     Dosage: UNK, DAILY (1/D)
     Route: 064
     Dates: end: 20100122
  3. FERRO SANOL [Concomitant]
     Dosage: UNK, DAILY (1/D)
     Route: 064
     Dates: end: 20100122
  4. NIDAZOL                            /00012501/ [Concomitant]
     Dosage: UNK, 2/D
     Dates: end: 20090421
  5. IRON [Concomitant]
     Dosage: UNK, DAILY (1/D)
  6. MULTI-VITAMIN [Concomitant]
     Dosage: UNK, DAILY (1/D)

REACTIONS (4)
  - ADVERSE EVENT [None]
  - DRUG EXPOSURE DURING PREGNANCY [None]
  - FOETAL DISTRESS SYNDROME [None]
  - TACHYCARDIA FOETAL [None]
